FAERS Safety Report 9005976 (Version 1)
Quarter: 2013Q1

REPORT INFORMATION
  Report Type: Spontaneous
  Country: US (occurrence: US)
  Receive Date: 20130109
  Receipt Date: 20130109
  Transmission Date: 20140127
  Serious: Yes (Hospitalization)
  Sender: FDA-Public Use
  Company Number: US-009507513-1301USA001631

PATIENT
  Age: 6 Year
  Sex: Female

DRUGS (4)
  1. SINGULAIR [Suspect]
     Dosage: 5 MG PER DAY
     Route: 048
  2. NEXIUM [Suspect]
     Dosage: 1 UNIT PER DAY
     Route: 048
  3. VENTOLIN (ALBUTEROL) [Suspect]
     Dosage: RESPIRATORY (INHALATION)
  4. SERETIDE [Suspect]
     Dosage: 1 PUFF PER DAY RESPIRATORY (INHALATION)

REACTIONS (2)
  - Platelet adhesiveness decreased [Unknown]
  - Haematoma [Unknown]
